FAERS Safety Report 12381430 (Version 2)
Quarter: 2016Q3

REPORT INFORMATION
  Report Type: Spontaneous
  Country: US (occurrence: US)
  Receive Date: 20160518
  Receipt Date: 20160709
  Transmission Date: 20161109
  Serious: No
  Sender: FDA-Public Use
  Company Number: US-009507513-1605USA001530

PATIENT
  Age: 84 Year
  Sex: Female

DRUGS (2)
  1. VALIUM [Concomitant]
     Active Substance: DIAZEPAM
     Dosage: UNK
  2. REMERON [Suspect]
     Active Substance: MIRTAZAPINE
     Indication: DEPRESSION
     Dosage: 15MG/ ONE PER DAY
     Route: 048
     Dates: start: 201405

REACTIONS (2)
  - Syncope [Unknown]
  - Drug administration error [Unknown]

NARRATIVE: CASE EVENT DATE: 20160430
